FAERS Safety Report 24666436 (Version 3)
Quarter: 2024Q4

REPORT INFORMATION
  Report Type: Report from Study
  Country: JP (occurrence: JP)
  Receive Date: 20241126
  Receipt Date: 20241204
  Transmission Date: 20250114
  Serious: Yes (Death)
  Sender: ABBVIE
  Company Number: JP-ABBVIE-5499323

PATIENT
  Age: 72 Year
  Sex: Male

DRUGS (2)
  1. FOSCARBIDOPA\FOSLEVODOPA [Suspect]
     Active Substance: FOSCARBIDOPA\FOSLEVODOPA
     Indication: Parkinson^s disease
     Dosage: DURING DAY: 0.37 ML/H, DURING NIGHT: 0.15 ML/H?LAST ADMIN DATE: 2023
     Route: 058
     Dates: start: 202310
  2. FOSCARBIDOPA\FOSLEVODOPA [Suspect]
     Active Substance: FOSCARBIDOPA\FOSLEVODOPA
     Dosage: DURING DAY: 0.34 ML/H, DURING NIGHT: 0.15 ML/H
     Route: 058
     Dates: start: 20231017

REACTIONS (18)
  - Death [Fatal]
  - Hallucination [Unknown]
  - Nightmare [Not Recovered/Not Resolved]
  - Mobility decreased [Unknown]
  - Vascular insufficiency [Unknown]
  - Hypoaesthesia [Unknown]
  - Dyskinesia [Unknown]
  - Musculoskeletal stiffness [Unknown]
  - Muscular weakness [Unknown]
  - Peripheral coldness [Unknown]
  - Infusion site discolouration [Not Recovered/Not Resolved]
  - Infusion site pain [Not Recovered/Not Resolved]
  - Infusion site mass [Not Recovered/Not Resolved]
  - Infusion site scar [Not Recovered/Not Resolved]
  - On and off phenomenon [Recovered/Resolved]
  - On and off phenomenon [Unknown]
  - Somnolence [Unknown]
  - Hallucination [Unknown]

NARRATIVE: CASE EVENT DATE: 20230101
